FAERS Safety Report 18298945 (Version 1)
Quarter: 2020Q3

REPORT INFORMATION
  Report Type: Report from Study
  Country: None (occurrence: AU)
  Receive Date: 20200923
  Receipt Date: 20200923
  Transmission Date: 20201103
  Serious: Yes (Other)
  Sender: FDA-Public Use
  Company Number: AU-ABBVIE-20K-008-3332497-00

PATIENT
  Age: 75 Year
  Sex: Male

DRUGS (2)
  1. IMBRUVICA [Suspect]
     Active Substance: IBRUTINIB
     Indication: CHRONIC LYMPHOCYTIC LEUKAEMIA
     Route: 048
     Dates: start: 20180901, end: 20200912
  2. JARDIANCE [Suspect]
     Active Substance: EMPAGLIFLOZIN
     Indication: DIABETES MELLITUS
     Route: 065
     Dates: start: 20200910

REACTIONS (5)
  - Anxiety [Not Recovered/Not Resolved]
  - Blood iron decreased [Unknown]
  - Pruritus [Recovered/Resolved]
  - Eye swelling [Recovered/Resolved]
  - Immune system disorder [Unknown]

NARRATIVE: CASE EVENT DATE: 20200912
